FAERS Safety Report 4864506-3 (Version None)
Quarter: 2005Q4

REPORT INFORMATION
  Report Type: 
  Country: None (occurrence: None)
  Receive Date: 20051222
  Receipt Date: 20051213
  Transmission Date: 20060501
  Serious: Yes (Hospitalization)
  Sender: FDA-Public Use
  Company Number: AU-ROCHE-428518

PATIENT
  Age: 82 Year
  Sex: Male
  Weight: 107 kg

DRUGS (7)
  1. CEFTRIAXONE [Suspect]
     Indication: DRUG USE FOR UNKNOWN INDICATION
     Dosage: GIVEN TWO TIMES.
     Route: 042
     Dates: start: 20040304, end: 20040311
  2. FLOXACILLIN SODIUM [Suspect]
     Indication: DRUG USE FOR UNKNOWN INDICATION
     Dosage: GIVEN FOUR TIMES.
     Route: 042
     Dates: start: 20040306, end: 20040309
  3. PANTOPRAZOLE [Suspect]
     Indication: DRUG USE FOR UNKNOWN INDICATION
     Dosage: GIVEN TWO TIMES.
     Route: 042
     Dates: end: 20040318
  4. PANTOPRAZOLE [Suspect]
     Dosage: GIVEN ONE TIME.
     Route: 048
     Dates: start: 20040305, end: 20040312
  5. GENTAMICIN SULFATE [Suspect]
     Indication: DRUG USE FOR UNKNOWN INDICATION
     Dosage: GIVEN ONE TIME.
     Route: 042
     Dates: start: 20040306, end: 20040306
  6. PERINDOPRIL [Suspect]
     Indication: DRUG USE FOR UNKNOWN INDICATION
     Dosage: GIVEN ONE TIME.
     Route: 048
     Dates: start: 20040307, end: 20040307
  7. ALLOPURINOL [Concomitant]
     Dosage: GIVEN ONE TIME.
     Route: 048

REACTIONS (3)
  - EOSINOPHILIA [None]
  - OEDEMA [None]
  - RENAL IMPAIRMENT [None]
